FAERS Safety Report 6512214-5 (Version None)
Quarter: 2009Q4

REPORT INFORMATION
  Report Type: 
  Country: None (occurrence: None)
  Receive Date: 20091222
  Receipt Date: 20090728
  Transmission Date: 20100525
  Serious: Yes (Other)
  Sender: FDA-Public Use
  Company Number: US-ASTRAZENECA-2009UW20348

PATIENT
  Age: 60 Year
  Sex: Female
  Weight: 103.4 kg

DRUGS (5)
  1. CRESTOR [Suspect]
     Route: 048
     Dates: start: 20050101
  2. CRESTOR [Suspect]
     Route: 048
  3. PLAVIX [Concomitant]
  4. ASPIRIN [Concomitant]
  5. COREG [Concomitant]

REACTIONS (4)
  - ARTHRALGIA [None]
  - MYALGIA [None]
  - PAIN IN EXTREMITY [None]
  - WEIGHT INCREASED [None]
